FAERS Safety Report 19074885 (Version 4)
Quarter: 2023Q2

REPORT INFORMATION
  Report Type: Other
  Country: ME (occurrence: None)
  Receive Date: 20210331
  Receipt Date: 20230427
  Transmission Date: 20230722
  Serious: No
  Sender: FDA-Public Use
  Company Number: ME-ROCHE-2800073

PATIENT
  Age: 54 Year
  Sex: Male
  Weight: 115 kg

DRUGS (13)
  1. OCRELIZUMAB [Suspect]
     Active Substance: OCRELIZUMAB
     Indication: Primary progressive multiple sclerosis
     Dosage: SUBSEQUENT DOSES: 20/MAY/2019
     Route: 042
     Dates: start: 20190506, end: 20190506
  2. OCRELIZUMAB [Suspect]
     Active Substance: OCRELIZUMAB
     Dosage: SUBSEQUENT DOSES: 06/APR/2020, 21/SEP/2020, 23/MARP/2021
     Route: 042
     Dates: start: 20191021, end: 20191021
  3. OCRELIZUMAB [Suspect]
     Active Substance: OCRELIZUMAB
     Route: 042
     Dates: start: 20200406, end: 20200406
  4. OCRELIZUMAB [Suspect]
     Active Substance: OCRELIZUMAB
     Route: 042
     Dates: start: 20210323, end: 20210323
  5. OCRELIZUMAB [Suspect]
     Active Substance: OCRELIZUMAB
     Route: 042
     Dates: start: 20190520, end: 20190520
  6. OCRELIZUMAB [Suspect]
     Active Substance: OCRELIZUMAB
     Route: 042
     Dates: start: 20210910, end: 20210910
  7. OCRELIZUMAB [Suspect]
     Active Substance: OCRELIZUMAB
     Route: 042
     Dates: start: 20220817, end: 20220817
  8. OCRELIZUMAB [Suspect]
     Active Substance: OCRELIZUMAB
     Route: 042
     Dates: start: 20200921, end: 20200921
  9. OCRELIZUMAB [Suspect]
     Active Substance: OCRELIZUMAB
     Route: 042
     Dates: start: 20220224, end: 20220224
  10. OCRELIZUMAB [Suspect]
     Active Substance: OCRELIZUMAB
     Route: 042
     Dates: start: 20230306, end: 20230306
  11. METHYLPREDNISOLONE [Concomitant]
     Active Substance: METHYLPREDNISOLONE
     Indication: Premedication
     Dosage: SUBSEQUENT DOSE: 20/MAY/2019, 21/OCT/2019, 06/APR/2020, 21/SEP/2020, 23/MAR/2021
     Route: 042
     Dates: start: 20190506
  12. CHLORPHENIRAMINE MALEATE [Concomitant]
     Active Substance: CHLORPHENIRAMINE MALEATE
     Indication: Premedication
     Dosage: SUBSEQUENT DOSE: 20/MAY/2019, 21/OCT/2019, 06/APR/2020, 21/SEP/2020, 23/MAR/2021
     Route: 030
     Dates: start: 20190506
  13. ACETAMINOPHEN [Concomitant]
     Active Substance: ACETAMINOPHEN
     Indication: Premedication
     Dosage: SUBSEQUENT DOSE: 20/MAY/2019, 21/OCT/2019, 06/APR/2020, 21/SEP/2020, 23/MAR/2021
     Route: 048
     Dates: start: 20190506

REACTIONS (1)
  - COVID-19 [Recovered/Resolved]

NARRATIVE: CASE EVENT DATE: 20210216
